FAERS Safety Report 20172590 (Version 5)
Quarter: 2022Q1

REPORT INFORMATION
  Report Type: Other
  Country: CN (occurrence: CN)
  Receive Date: 20211211
  Receipt Date: 20220316
  Transmission Date: 20220423
  Serious: Yes (Other)
  Sender: FDA-Public Use
  Company Number: CN-002147023-NVSC2021CN275222

PATIENT
  Age: 64 Year
  Sex: Female

DRUGS (23)
  1. RANIBIZUMAB [Suspect]
     Active Substance: RANIBIZUMAB
     Indication: Diabetic retinal oedema
     Dosage: 0.05 ML PRN
     Route: 050
     Dates: start: 20190917
  2. CALCIUM DOBESILATE [Concomitant]
     Active Substance: CALCIUM DOBESILATE
     Indication: Diabetic retinal oedema
     Dosage: 1 DOSAGE FORM
     Route: 048
     Dates: start: 20200921, end: 20210927
  3. CALCIUM DOBESILATE [Concomitant]
     Active Substance: CALCIUM DOBESILATE
     Dosage: 1 DOSAGE FORM
     Route: 048
     Dates: start: 20210716, end: 20210722
  4. CALCIUM DOBESILATE [Concomitant]
     Active Substance: CALCIUM DOBESILATE
     Dosage: 1 DOSAGE FORM
     Route: 048
     Dates: start: 20201023, end: 20201029
  5. CALCIUM DOBESILATE [Concomitant]
     Active Substance: CALCIUM DOBESILATE
     Route: 065
     Dates: start: 20190917
  6. CALCIUM DOBESILATE [Concomitant]
     Active Substance: CALCIUM DOBESILATE
     Route: 048
     Dates: start: 20200805, end: 20200812
  7. CALCIUM DOBESILATE [Concomitant]
     Active Substance: CALCIUM DOBESILATE
     Route: 048
     Dates: start: 20200821, end: 20200827
  8. CALCIUM DOBESILATE [Concomitant]
     Active Substance: CALCIUM DOBESILATE
     Route: 048
     Dates: start: 20201023, end: 20201029
  9. CALCIUM DOBESILATE [Concomitant]
     Active Substance: CALCIUM DOBESILATE
     Dosage: 1 DOSAGE FORM
     Route: 048
     Dates: start: 20201023
  10. CALCIUM DOBESILATE [Concomitant]
     Active Substance: CALCIUM DOBESILATE
     Dosage: 1 DOSAGE FORM
     Route: 048
     Dates: start: 20210219, end: 20210228
  11. DICLOFENAC SODIUM [Concomitant]
     Active Substance: DICLOFENAC SODIUM
     Indication: Adjuvant therapy
     Dosage: 1 DRP
     Route: 047
     Dates: start: 20201023, end: 20201112
  12. DIPYRIDAMOLE [Concomitant]
     Active Substance: DIPYRIDAMOLE
     Indication: Diabetes mellitus
     Dosage: 25 MG
     Route: 048
     Dates: start: 20190806
  13. GLICLAZIDE [Concomitant]
     Active Substance: GLICLAZIDE
     Indication: Diabetes mellitus
     Dosage: 90 MG
     Route: 048
     Dates: start: 20210806
  14. METHYLCOBALAMIN [Concomitant]
     Active Substance: METHYLCOBALAMIN
     Indication: Diabetes mellitus
     Dosage: 0.5 MG
     Route: 048
     Dates: start: 20190806
  15. METFORMIN HYDROCHLORIDE [Concomitant]
     Active Substance: METFORMIN HYDROCHLORIDE
     Indication: Diabetes mellitus
     Dosage: 500 MG
     Route: 048
     Dates: start: 20190806
  16. SITAGLIPTIN PHOSPHATE [Concomitant]
     Active Substance: SITAGLIPTIN PHOSPHATE
     Indication: Diabetes mellitus
     Dosage: 100 ML
     Route: 048
     Dates: start: 20210716, end: 20210730
  17. SITAGLIPTIN PHOSPHATE [Concomitant]
     Active Substance: SITAGLIPTIN PHOSPHATE
     Route: 048
     Dates: start: 20190806
  18. SODIUM HYALURONATE [Concomitant]
     Active Substance: HYALURONATE SODIUM
     Indication: Adjuvant therapy
     Dosage: 1 DRP
     Route: 047
     Dates: start: 20210716, end: 20210730
  19. TELMISARTAN [Concomitant]
     Active Substance: TELMISARTAN
     Indication: Hypertension
     Dosage: 80 UNK
     Route: 048
     Dates: start: 201907
  20. HYPROMELLOSES [Concomitant]
     Active Substance: HYPROMELLOSES
     Indication: Diabetic retinal oedema
     Dosage: 1 DOSAGE FORM
     Route: 047
     Dates: start: 20210219
  21. TRIVITAMINS B [Concomitant]
     Indication: Diabetic retinal oedema
     Dosage: 2 DOSAGE FORM
     Route: 048
     Dates: start: 20210219, end: 20210228
  22. DEXTRAN 70 [Concomitant]
     Active Substance: DEXTRAN 70
     Indication: Diabetic retinal oedema
     Dosage: 1 DOSAGE FORM
     Route: 047
     Dates: start: 20210219, end: 20210320
  23. GLYCERIN [Concomitant]
     Active Substance: GLYCERIN
     Indication: Diabetic retinal oedema
     Dosage: 1 DOSAGE FORM
     Route: 047
     Dates: start: 20210219, end: 20210320

REACTIONS (3)
  - Cataract [Recovered/Resolved]
  - Macular oedema [Recovered/Resolved]
  - Conjunctivitis [Recovered/Resolved]

NARRATIVE: CASE EVENT DATE: 20200731
